FAERS Safety Report 7240333-7 (Version None)
Quarter: 2011Q1

REPORT INFORMATION
  Report Type: 
  Country: None (occurrence: None)
  Receive Date: 20110124
  Receipt Date: 20110112
  Transmission Date: 20110831
  Serious: Yes (Life-Threatening, Hospitalization)
  Sender: FDA-Public Use
  Company Number: FR-SANOFI-AVENTIS-2011SA002257

PATIENT
  Age: 82 Year
  Sex: Male

DRUGS (15)
  1. BUDESONIDE/FORMOTEROL [Concomitant]
  2. DOLIPRANE [Concomitant]
  3. LASIX [Interacting]
     Route: 048
  4. LASIX [Interacting]
     Route: 048
     Dates: end: 20101209
  5. RAMIPRIL [Interacting]
     Indication: CARDIAC FAILURE
     Route: 048
     Dates: end: 20101209
  6. SPIRIVA [Concomitant]
  7. CORDARONE [Interacting]
     Indication: CARDIAC FAILURE
     Route: 048
     Dates: end: 20101209
  8. DIGOXINE [Suspect]
     Indication: CARDIAC FAILURE
     Route: 048
     Dates: end: 20101209
  9. ALLOPURINOL [Concomitant]
  10. NOCTRAN [Concomitant]
  11. BRONCHODUAL [Concomitant]
  12. CORONARY VASODILATORS [Interacting]
     Indication: CARDIAC FAILURE
     Route: 048
     Dates: end: 20101209
  13. KARDEGIC [Concomitant]
     Route: 048
     Dates: end: 20101210
  14. FENOFIBRATE [Concomitant]
  15. XYZAL [Concomitant]

REACTIONS (4)
  - DRUG INTERACTION [None]
  - BRADYCARDIA [None]
  - THROMBOCYTOPENIA [None]
  - RENAL FAILURE ACUTE [None]
